FAERS Safety Report 12496896 (Version 1)
Quarter: 2016Q2

REPORT INFORMATION
  Report Type: Report from Study
  Country: CO (occurrence: CO)
  Receive Date: 20160624
  Receipt Date: 20160624
  Transmission Date: 20160815
  Serious: Yes (Death, Hospitalization, Other)
  Sender: FDA-Public Use
  Company Number: CO-ABBVIE-16P-036-1660051-00

PATIENT
  Age: 63 Year
  Sex: Male

DRUGS (1)
  1. ZEMPLAR [Suspect]
     Active Substance: PARICALCITOL
     Indication: HYPERPARATHYROIDISM SECONDARY
     Route: 048
     Dates: start: 20150825, end: 20160525

REACTIONS (5)
  - Pyrexia [Fatal]
  - Respiratory failure [Fatal]
  - Unevaluable investigation [Fatal]
  - Vomiting [Fatal]
  - Bacteraemia [Fatal]

NARRATIVE: CASE EVENT DATE: 20160525
